FAERS Safety Report 8201678-7 (Version None)
Quarter: 2012Q1

REPORT INFORMATION
  Report Type: 
  Country: None (occurrence: None)
  Receive Date: 20120312
  Receipt Date: 20120305
  Transmission Date: 20120608
  Serious: Yes (Hospitalization)
  Sender: FDA-Public Use
  Company Number: KR-ROCHE-1039711

PATIENT
  Sex: Female
  Weight: 52.7 kg

DRUGS (10)
  1. GLIMEPIRIDE [Concomitant]
     Dates: start: 20020510
  2. PIOGLITAZONE [Concomitant]
     Dates: start: 20020510
  3. METFORMIN HCL [Concomitant]
     Dates: start: 20020510
  4. CISPLATIN [Suspect]
     Indication: GASTRIC CANCER
     Dosage: DATE OF LAST DOSE PRIOR TO SAE: 03 FEB 2012
     Route: 042
     Dates: start: 20120114
  5. AVASTIN [Suspect]
     Indication: GASTRIC CANCER
     Dosage: DATE OF LAST DOSE PRIOR TO SAE: 03 FEB 2012
     Route: 042
     Dates: start: 20120114
  6. XELODA [Suspect]
     Indication: GASTRIC CANCER
     Dosage: DATE OF LAST DOSE PRIOR TO SAE: 03 FEB 2012
     Route: 048
     Dates: start: 20120114, end: 20120217
  7. THIOCTIC ACID [Concomitant]
     Dates: start: 20020510
  8. DOCETAXEL [Suspect]
     Indication: GASTRIC CANCER
     Dosage: DATE OF LAST DOSE PRIOR TO SAE: 03 FEB 2012
     Route: 042
     Dates: start: 20120114
  9. ATORVASTATIN [Concomitant]
     Dates: start: 20020510
  10. ARTEMISIA ASIATICA [Concomitant]
     Dates: start: 20120125

REACTIONS (2)
  - FEBRILE NEUTROPENIA [None]
  - GASTROINTESTINAL PERFORATION [None]
